FAERS Safety Report 23534539 (Version 1)
Quarter: 2024Q1

REPORT INFORMATION
  Report Type: Spontaneous
  Country: US (occurrence: US)
  Receive Date: 20240217
  Receipt Date: 20240217
  Transmission Date: 20240410
  Serious: No
  Sender: FDA-Public Use
  Company Number: US-SANOFI-01944362

PATIENT
  Age: 64 Year
  Sex: Female

DRUGS (1)
  1. LANTUS SOLOSTAR [Suspect]
     Active Substance: INSULIN GLARGINE
     Indication: Type 2 diabetes mellitus
     Dosage: 15 TO 20 UNITS ONCE DAILY PER SLIDING SCALE QD AND DRUG TREATMENT DURATION:UNKNOWN
     Dates: start: 2021

REACTIONS (1)
  - Cough [Unknown]
